FAERS Safety Report 6062783-7 (Version None)
Quarter: 2009Q1

REPORT INFORMATION
  Report Type: 
  Country: None (occurrence: None)
  Receive Date: 20090203
  Receipt Date: 20090121
  Transmission Date: 20090719
  Serious: Yes (Death)
  Sender: FDA-Public Use
  Company Number: US-JNJFOC-20090107121

PATIENT
  Sex: Male
  Weight: 94.35 kg

DRUGS (5)
  1. FENTANYL-75 [Suspect]
     Indication: DRUG USE FOR UNKNOWN INDICATION
     Route: 065
  2. ATENOLOL [Concomitant]
  3. ALPRAZOLAM [Concomitant]
  4. BENZODIAZEPINES [Concomitant]
  5. ALCOHOL [Concomitant]

REACTIONS (9)
  - ALCOHOLISM [None]
  - CARDIOMEGALY [None]
  - CONTUSION [None]
  - DISEASE COMPLICATION [None]
  - DRUG LEVEL INCREASED [None]
  - EMPHYSEMA [None]
  - FATTY LIVER ALCOHOLIC [None]
  - LIMB INJURY [None]
  - PNEUMOCONIOSIS [None]
